FAERS Safety Report 9336066 (Version 1)
Quarter: 2013Q2

REPORT INFORMATION
  Report Type: Spontaneous
  Country: US (occurrence: US)
  Receive Date: 20130607
  Receipt Date: 20130607
  Transmission Date: 20140414
  Serious: No
  Sender: FDA-Public Use
  Company Number: US-BIOGENIDEC-2013BI048389

PATIENT
  Sex: Male

DRUGS (2)
  1. AVONEX [Suspect]
     Indication: MULTIPLE SCLEROSIS
     Route: 030
     Dates: start: 20010102
  2. AVONEX [Suspect]
     Indication: MULTIPLE SCLEROSIS
     Route: 030

REACTIONS (2)
  - Visual acuity reduced [Not Recovered/Not Resolved]
  - Injection site reaction [Unknown]
